FAERS Safety Report 6051004-7 (Version None)
Quarter: 2009Q1

REPORT INFORMATION
  Report Type: 
  Country: None (occurrence: None)
  Receive Date: 20090126
  Receipt Date: 20081119
  Transmission Date: 20090719
  Serious: No
  Sender: FDA-Public Use
  Company Number: US-TYCO HEALTHCARE/MALLINCKRODT-T200801990

PATIENT

DRUGS (1)
  1. OPTIRAY 300 [Suspect]
     Indication: SPINAL MYELOGRAM
     Dosage: 15 ML, SINGLE
     Route: 037
     Dates: start: 20081119, end: 20081119

REACTIONS (1)
  - MEDICATION ERROR [None]
